FAERS Safety Report 10063029 (Version 1)
Quarter: 2014Q2

REPORT INFORMATION
  Report Type: Spontaneous
  Country: US (occurrence: US)
  Receive Date: 20140407
  Receipt Date: 20140407
  Transmission Date: 20141212
  Serious: Yes (Other)
  Sender: FDA-Public Use
  Company Number: US-009507513-1404USA004021

PATIENT
  Sex: Female

DRUGS (1)
  1. PROPECIA [Suspect]

REACTIONS (2)
  - Abortion spontaneous [Unknown]
  - Exposure via father [Recovered/Resolved]
